FAERS Safety Report 24613190 (Version 1)
Quarter: 2024Q4

REPORT INFORMATION
  Report Type: Report from Study
  Country: US (occurrence: US)
  Receive Date: 20241113
  Receipt Date: 20241113
  Transmission Date: 20250114
  Serious: Yes (Death)
  Sender: BAYER HEALTHCARE PHARMACEUTICALS INC.
  Company Number: US-BAYER-2024A157657

PATIENT
  Age: 3 Month
  Sex: Female

DRUGS (1)
  1. ADEMPAS [Suspect]
     Active Substance: RIOCIGUAT
     Indication: Pulmonary arterial hypertension
     Dosage: 0.5 MG
     Dates: start: 20241017, end: 20241104

REACTIONS (3)
  - Death [Fatal]
  - Product administered to patient of inappropriate age [None]
  - Wrong technique in product usage process [None]

NARRATIVE: CASE EVENT DATE: 20241104
